FAERS Safety Report 4371825-6 (Version None)
Quarter: 2004Q2

REPORT INFORMATION
  Report Type: 
  Country: None (occurrence: None)
  Receive Date: 20040603
  Receipt Date: 20040603
  Transmission Date: 20050107
  Serious: Yes (Hospitalization)
  Sender: FDA-Public Use
  Company Number: None

PATIENT
  Sex: Female
  Weight: 102.7 kg

DRUGS (13)
  1. IFNA1B [Suspect]
     Indication: RENAL CANCER METASTATIC
     Dosage: 540 MCG QD SC
     Route: 058
     Dates: start: 20040322, end: 20040504
  2. FNA1B [Suspect]
     Indication: RENAL CANCER METASTATIC
     Dosage: 3 MCG QD SC
     Route: 058
     Dates: start: 20040315, end: 20040321
  3. COUMADIN [Concomitant]
  4. PHENERGAN [Concomitant]
  5. K-DUR 10 [Concomitant]
  6. SYNTHROID [Concomitant]
  7. TOPROL-XL [Concomitant]
  8. DIVAN [Concomitant]
  9. HCT [Concomitant]
  10. DEMADEX [Concomitant]
  11. ZOCOR [Concomitant]
  12. NEXIUM [Concomitant]
  13. METACLOPROMIDE [Concomitant]

REACTIONS (5)
  - ANAEMIA [None]
  - DYSPNOEA [None]
  - FATIGUE [None]
  - GASTROINTESTINAL HAEMORRHAGE [None]
  - OCCULT BLOOD POSITIVE [None]
